FAERS Safety Report 23893643 (Version 1)
Quarter: 2024Q2

REPORT INFORMATION
  Report Type: Spontaneous
  Country: US (occurrence: None)
  Receive Date: 20240524
  Receipt Date: 20240524
  Transmission Date: 20240716
  Serious: No
  Sender: FDA-Public Use
  Company Number: US-ROCHE-3418406

PATIENT
  Age: 1 Year
  Sex: Female
  Weight: 13.166 kg

DRUGS (4)
  1. ACTEMRA [Suspect]
     Active Substance: TOCILIZUMAB
     Indication: Arthritis
     Dosage: ONGOING: YES
     Route: 058
     Dates: start: 20230831
  2. ACTEMRA [Suspect]
     Active Substance: TOCILIZUMAB
  3. NAPROXEN [Concomitant]
     Active Substance: NAPROXEN
  4. MOTRIN [Concomitant]
     Active Substance: IBUPROFEN

REACTIONS (5)
  - Product preparation error [Unknown]
  - Wrong technique in product usage process [Unknown]
  - Device mechanical issue [Unknown]
  - Drug delivery system malfunction [Unknown]
  - No adverse event [Unknown]

NARRATIVE: CASE EVENT DATE: 20230831
